FAERS Safety Report 15005777 (Version 5)
Quarter: 2020Q2

REPORT INFORMATION
  Report Type: Report from Study
  Country: DE (occurrence: DE)
  Receive Date: 20180613
  Receipt Date: 20200628
  Transmission Date: 20200713
  Serious: Yes (Other)
  Sender: FDA-Public Use
  Company Number: PHHY2017DE020716

PATIENT
  Age: 40 Year
  Sex: Female

DRUGS (1)
  1. GILENYA [Suspect]
     Active Substance: FINGOLIMOD HYDROCHLORIDE
     Indication: MULTIPLE SCLEROSIS
     Dosage: UNK, QD
     Route: 048
     Dates: start: 20141202

REACTIONS (11)
  - Blood cholesterol increased [Unknown]
  - Lymphocyte count increased [Recovered/Resolved]
  - White blood cell count decreased [Unknown]
  - Low density lipoprotein increased [Unknown]
  - Paraesthesia [Recovered/Resolved]
  - Monocyte count increased [Unknown]
  - Neutrophil count decreased [Unknown]
  - Basophil count decreased [Unknown]
  - Blood creatinine increased [Unknown]
  - Influenza [Unknown]
  - Herpes zoster [Recovered/Resolved]

NARRATIVE: CASE EVENT DATE: 20151106
